FAERS Safety Report 10913558 (Version 1)
Quarter: 2015Q1

REPORT INFORMATION
  Report Type: Spontaneous
  Country: US (occurrence: None)
  Receive Date: 20150311
  Receipt Date: 20150311
  Transmission Date: 20150721
  Serious: Yes (Disabling)
  Sender: FDA-Public Use
  Company Number: 2774427

PATIENT
  Sex: Female

DRUGS (2)
  1. MELPHALAN [Suspect]
     Active Substance: MELPHALAN
     Indication: RETINOBLASTOMA
     Dosage: CYCLICAL
     Route: 013
  2. TOPOTECAN HYDROCHLORIDE. [Suspect]
     Active Substance: TOPOTECAN HYDROCHLORIDE
     Indication: RETINOBLASTOMA
     Dosage: CYCLICAL
     Route: 013

REACTIONS (5)
  - Enophthalmos [None]
  - Scleritis [None]
  - Iris atrophy [None]
  - Toxicity to various agents [None]
  - Ischaemia [None]
